FAERS Safety Report 9558582 (Version 6)
Quarter: 2014Q4

REPORT INFORMATION
  Report Type: Report from Study
  Country: GR (occurrence: GR)
  Receive Date: 20130926
  Receipt Date: 20141114
  Transmission Date: 20150529
  Serious: Yes (Death, Life-Threatening, Hospitalization)
  Sender: FDA-Public Use
  Company Number: GR-ABBVIE-13P-066-1055777-00

PATIENT
  Age: 63 Year
  Sex: Female
  Weight: 83 kg

DRUGS (25)
  1. ANGORON [Concomitant]
     Active Substance: AMIODARONE HYDROCHLORIDE
     Route: 048
     Dates: start: 20121109, end: 20121112
  2. RESOFERON [Concomitant]
     Indication: GASTRIC BYPASS
  3. MEGA CALCIUM [Concomitant]
     Indication: OSTEOPOROSIS
     Route: 048
     Dates: start: 2003, end: 20130321
  4. SODIUM BICARBONATE. [Concomitant]
     Active Substance: SODIUM BICARBONATE
     Indication: RENAL TUBULAR ACIDOSIS
     Route: 048
     Dates: start: 2011, end: 20130223
  5. RESOFERON [Concomitant]
     Indication: MALABSORPTION
  6. FILICINE [Concomitant]
     Indication: MALABSORPTION
     Route: 048
     Dates: start: 2004, end: 20130321
  7. NEUROBION [Concomitant]
     Active Substance: CYANOCOBALAMIN\PYRIDOXINE\THIAMINE
     Indication: MALABSORPTION
     Dosage: 100+200+0.2MG ONCE DAILY
     Route: 048
     Dates: start: 20121114, end: 20130223
  8. SODIUM BICARBONATE. [Concomitant]
     Active Substance: SODIUM BICARBONATE
     Indication: GASTRIC BYPASS
  9. T4 [Concomitant]
     Active Substance: LEVOTHYROXINE
     Route: 048
     Dates: start: 20130118, end: 20130321
  10. HUMIRA [Suspect]
     Active Substance: ADALIMUMAB
     Indication: HIDRADENITIS
     Route: 058
     Dates: start: 20121123, end: 20130220
  11. ANGORON [Concomitant]
     Active Substance: AMIODARONE HYDROCHLORIDE
     Route: 048
     Dates: start: 20121113, end: 20130321
  12. OSTELIN [Concomitant]
     Active Substance: ERGOCALCIFEROL
     Indication: HYPERPARATHYROIDISM
     Route: 058
     Dates: start: 20121018, end: 20130321
  13. T4 [Concomitant]
     Active Substance: LEVOTHYROXINE
     Indication: AUTOIMMUNE THYROIDITIS
     Route: 048
     Dates: start: 20121221, end: 20130118
  14. RESOFERON [Concomitant]
     Indication: IRON DEFICIENCY
     Route: 048
     Dates: start: 2004, end: 20130321
  15. VITAMIN D3 [Concomitant]
     Active Substance: CHOLECALCIFEROL
     Indication: OSTEOPOROSIS
     Route: 048
     Dates: start: 2011, end: 20130321
  16. HIBITANE [Concomitant]
     Active Substance: CHLORHEXIDINE
     Indication: HIDRADENITIS
     Route: 061
     Dates: start: 20120713, end: 20130321
  17. ARANESP [Concomitant]
     Active Substance: DARBEPOETIN ALFA
     Indication: MALABSORPTION
     Route: 058
     Dates: start: 2010, end: 20130321
  18. ARANESP [Concomitant]
     Active Substance: DARBEPOETIN ALFA
     Indication: GASTRIC BYPASS
  19. SALOSPIR [Concomitant]
     Active Substance: ASPIRIN\CAFFEINE
     Indication: ATRIAL FIBRILLATION
     Route: 048
     Dates: start: 20121130, end: 20130223
  20. ONE ALPHA [Concomitant]
     Active Substance: ALFACALCIDOL
     Indication: OSTEOPOROSIS
     Route: 048
     Dates: start: 2003, end: 20130321
  21. ANGORON [Concomitant]
     Active Substance: AMIODARONE HYDROCHLORIDE
     Indication: ATRIAL FIBRILLATION
     Dosage: 300MG IN 30MIN, THE REST (900MG) IN 24 HOURS
     Route: 042
     Dates: start: 20121107, end: 20121108
  22. FILICINE [Concomitant]
     Indication: GASTRIC BYPASS
  23. NEUROBION [Concomitant]
     Active Substance: CYANOCOBALAMIN\PYRIDOXINE\THIAMINE
     Indication: GASTRIC BYPASS
  24. RIFINAH [Concomitant]
     Active Substance: ISONIAZID\RIFAMPIN
     Indication: ANTIBIOTIC PROPHYLAXIS
     Route: 048
     Dates: start: 20121018, end: 20130118
  25. T4 [Concomitant]
     Active Substance: LEVOTHYROXINE
     Route: 048
     Dates: start: 20121221, end: 20130118

REACTIONS (6)
  - Cardiac arrest [Unknown]
  - Septic shock [Unknown]
  - Cholangitis [Unknown]
  - Respiratory failure [Unknown]
  - Autoimmune pancreatitis [Fatal]
  - Sepsis [Unknown]

NARRATIVE: CASE EVENT DATE: 20130223
